FAERS Safety Report 16314485 (Version 1)
Quarter: 2019Q2

REPORT INFORMATION
  Report Type: Spontaneous
  Country: NG (occurrence: NG)
  Receive Date: 20190515
  Receipt Date: 20190515
  Transmission Date: 20190711
  Serious: Yes (Hospitalization, Other)
  Sender: FDA-Public Use
  Company Number: NG-MYLANLABS-2019M1045681

PATIENT
  Age: 52 Year
  Sex: Male

DRUGS (1)
  1. EFAVIRENZ/LAMIVUDINE/TENOFOVIR/TENOFOVIR DISOPROXIL FUMARATE [Suspect]
     Active Substance: EFAVIRENZ\LAMIVUDINE\TENOFOVIR DISOPROXIL FUMARATE
     Indication: HIV INFECTION
     Route: 065

REACTIONS (5)
  - Immune reconstitution inflammatory syndrome [Recovering/Resolving]
  - Facial paralysis [Recovering/Resolving]
  - Paralysis [Recovering/Resolving]
  - Meningitis cryptococcal [Recovering/Resolving]
  - Blindness [Recovering/Resolving]
